FAERS Safety Report 8353145-8 (Version None)
Quarter: 2012Q2

REPORT INFORMATION
  Report Type: 
  Country: None (occurrence: None)
  Receive Date: 20120511
  Receipt Date: 20120509
  Transmission Date: 20120825
  Serious: Yes (Other)
  Sender: FDA-Public Use
  Company Number: US-PFIZER INC-2012114231

PATIENT
  Sex: Male
  Weight: 68 kg

DRUGS (3)
  1. GENOTROPIN [Suspect]
     Indication: HYPOPITUITARISM
  2. GENOTROPIN [Suspect]
     Indication: GROWTH HORMONE DEFICIENCY
     Dosage: 13.8 MG, 1X/DAY
  3. CLARITIN [Concomitant]
     Indication: CHRONIC SINUSITIS
     Dosage: 10 MG, 1X/DAY

REACTIONS (1)
  - INFECTIOUS MONONUCLEOSIS [None]
